FAERS Safety Report 6959160-0 (Version None)
Quarter: 2010Q3

REPORT INFORMATION
  Report Type: 
  Country: None (occurrence: None)
  Receive Date: 20100831
  Receipt Date: 20100802
  Transmission Date: 20110219
  Serious: Yes (Other)
  Sender: FDA-Public Use
  Company Number: PHHY2010BR50753

PATIENT
  Sex: Female
  Weight: 55 kg

DRUGS (1)
  1. FORASEQ [Suspect]
     Indication: ASTHMA
     Dosage: 1 INHALATION WITH EACH ACTIVE PRINCIPLE, EVERY 12 HOURS

REACTIONS (7)
  - APHTHOUS STOMATITIS [None]
  - INCORRECT DOSE ADMINISTERED [None]
  - MOUTH INJURY [None]
  - ORAL PAIN [None]
  - TONGUE ULCERATION [None]
  - TREATMENT NONCOMPLIANCE [None]
  - WEIGHT INCREASED [None]
